FAERS Safety Report 4268469-3 (Version None)
Quarter: 2004Q1

REPORT INFORMATION
  Report Type: 
  Country: None (occurrence: None)
  Receive Date: 20040108
  Receipt Date: 20031224
  Transmission Date: 20041129
  Serious: Yes (Hospitalization)
  Sender: FDA-Public Use
  Company Number: 184388

PATIENT
  Age: 50 Year
  Sex: Female

DRUGS (5)
  1. AVONEX [Suspect]
     Indication: MULTIPLE SCLEROSIS
     Dosage: 30 MCG QW IM
     Route: 030
     Dates: start: 20021106
  2. LIPITOR [Concomitant]
  3. LANOXIN [Concomitant]
  4. PREMARIN [Concomitant]
  5. ZOLOFT [Concomitant]

REACTIONS (1)
  - CORONARY ARTERY OCCLUSION [None]
